FAERS Safety Report 5413866-3 (Version None)
Quarter: 2007Q3

REPORT INFORMATION
  Report Type: 
  Country: None (occurrence: None)
  Receive Date: 20070814
  Receipt Date: 20070612
  Transmission Date: 20080115
  Serious: Yes (Other)
  Sender: FDA-Public Use
  Company Number: US-BRISTOL-MYERS SQUIBB COMPANY-13811583

PATIENT
  Age: 44 Year
  Sex: Male

DRUGS (8)
  1. REYATAZ [Suspect]
     Indication: HIV INFECTION
     Route: 048
     Dates: start: 20060831
  2. TRAVATAN [Concomitant]
  3. RITONAVIR [Concomitant]
  4. TRAZODONE HCL [Concomitant]
  5. AZT [Concomitant]
  6. WELLBUTRIN [Concomitant]
  7. ACYCLOVIR [Concomitant]
  8. MARINOL [Concomitant]

REACTIONS (1)
  - NEPHROLITHIASIS [None]
